FAERS Safety Report 9961351 (Version 3)
Quarter: 2014Q2

REPORT INFORMATION
  Report Type: Report from Study
  Country: US (occurrence: US)
  Receive Date: 20140305
  Receipt Date: 20140606
  Transmission Date: 20141212
  Serious: No
  Sender: FDA-Public Use
  Company Number: US-JNJFOC-20140110709

PATIENT
  Age: 52 Year
  Sex: Male

DRUGS (1)
  1. USTEKINUMAB [Suspect]
     Indication: PSORIASIS
     Route: 058
     Dates: start: 20100719, end: 20140114

REACTIONS (3)
  - Optic disc drusen [Unknown]
  - Vitreous detachment [Unknown]
  - Bronchitis [Unknown]
